FAERS Safety Report 19535272 (Version 1)
Quarter: 2021Q3

REPORT INFORMATION
  Report Type: Spontaneous
  Country: SE (occurrence: SE)
  Receive Date: 20210713
  Receipt Date: 20210713
  Transmission Date: 20211014
  Serious: Yes (Other)
  Sender: FDA-Public Use
  Company Number: NVSC2021SE148055

PATIENT
  Sex: Female
  Weight: 71 kg

DRUGS (3)
  1. BUPROPION SANDOZ [Suspect]
     Active Substance: BUPROPION
     Indication: PRODUCT USED FOR UNKNOWN INDICATION
     Dosage: 300 MG, QD (150 MG 2 TABLETTER 1 G?NG OM DAGEN)
     Route: 048
  2. VOXRA [Suspect]
     Active Substance: BUPROPION HYDROCHLORIDE
     Indication: PRODUCT USED FOR UNKNOWN INDICATION
     Dosage: 300 MG, QD (150 MG 2 TABLETTER 1 G?NG OM DAGEN)
     Route: 048
  3. BUPROPION. [Suspect]
     Active Substance: BUPROPION
     Indication: DEPRESSION
     Dosage: 300 MG, QD (150 MG 2 TABLETTER 1 G?NG PER DAG )
     Route: 048
     Dates: start: 201811

REACTIONS (3)
  - Joint instability [Recovering/Resolving]
  - Uterine prolapse [Recovering/Resolving]
  - Urinary incontinence [Recovered/Resolved]
